FAERS Safety Report 10652284 (Version 2)
Quarter: 2015Q1

REPORT INFORMATION
  Report Type: Report from Study
  Country: EG (occurrence: EG)
  Receive Date: 20141215
  Receipt Date: 20150129
  Transmission Date: 20150720
  Serious: Yes (Life-Threatening)
  Sender: FDA-Public Use
  Company Number: EG-SA-2014SA168978

PATIENT
  Sex: Male

DRUGS (2)
  1. LANTUS [Suspect]
     Active Substance: INSULIN GLARGINE
     Indication: TYPE 1 DIABETES MELLITUS
     Route: 058
     Dates: start: 20140817
  2. ACTRAPID [Suspect]
     Active Substance: INSULIN HUMAN
     Route: 058
     Dates: start: 201311

REACTIONS (1)
  - Ketoacidosis [Recovering/Resolving]
